FAERS Safety Report 21453004 (Version 1)
Quarter: 2022Q4

REPORT INFORMATION
  Report Type: Other
  Country: CN (occurrence: None)
  Receive Date: 20221013
  Receipt Date: 20221013
  Transmission Date: 20230113
  Serious: Yes (Other)
  Sender: FDA-Public Use
  Company Number: CN-ROCHE-3195216

PATIENT
  Age: 49 Year
  Sex: Male

DRUGS (12)
  1. CAPECITABINE [Suspect]
     Active Substance: CAPECITABINE
     Indication: Rectal cancer
     Route: 065
  2. CAPECITABINE [Suspect]
     Active Substance: CAPECITABINE
     Indication: Metastases to liver
  3. BEVACIZUMAB [Suspect]
     Active Substance: BEVACIZUMAB
     Indication: Metastases to liver
     Route: 065
  4. BEVACIZUMAB [Suspect]
     Active Substance: BEVACIZUMAB
     Indication: Rectal cancer
  5. OXALIPLATIN [Suspect]
     Active Substance: OXALIPLATIN
     Indication: Rectal cancer
     Route: 065
  6. OXALIPLATIN [Suspect]
     Active Substance: OXALIPLATIN
     Indication: Metastases to liver
  7. LEUCOVORIN [Concomitant]
     Active Substance: LEUCOVORIN
  8. FLUOROURACIL [Concomitant]
     Active Substance: FLUOROURACIL
  9. OXALIPLATIN [Concomitant]
     Active Substance: OXALIPLATIN
  10. CETUXIMAB [Concomitant]
     Active Substance: CETUXIMAB
  11. REGORAFENIB [Concomitant]
     Active Substance: REGORAFENIB
  12. TISLELIZUMAB [Concomitant]
     Active Substance: TISLELIZUMAB
     Dates: start: 20210904

REACTIONS (1)
  - Disease progression [Unknown]
